FAERS Safety Report 8293626 (Version 4)
Quarter: 2013Q4

REPORT INFORMATION
  Report Type: Spontaneous
  Country: US (occurrence: US)
  Receive Date: 20111216
  Receipt Date: 20131111
  Transmission Date: 20140711
  Serious: Yes (Hospitalization)
  Sender: FDA-Public Use
  Company Number: US-BIOGENIDEC-2011BI046579

PATIENT
  Age: 38 Year
  Sex: Female

DRUGS (1)
  1. AVONEX [Suspect]
     Indication: MULTIPLE SCLEROSIS
     Route: 030
     Dates: start: 20110731, end: 20111126

REACTIONS (18)
  - Asthma [Recovered/Resolved]
  - Chronic obstructive pulmonary disease [Not Recovered/Not Resolved]
  - Wheezing [Recovered/Resolved]
  - Decreased immune responsiveness [Recovered/Resolved]
  - Pneumonia [Not Recovered/Not Resolved]
  - Dehydration [Unknown]
  - Electrolyte depletion [Unknown]
  - Renal failure acute [Unknown]
  - Gastric disorder [Recovered/Resolved]
  - Respiratory failure [Unknown]
  - Pleural effusion [Unknown]
  - Oedema [Unknown]
  - Agitation [Not Recovered/Not Resolved]
  - Hallucination [Recovered/Resolved]
  - Hypophagia [Recovered/Resolved]
  - Urinary retention [Unknown]
  - Myalgia [Recovered/Resolved]
  - Chills [Recovered/Resolved]
